FAERS Safety Report 6107341-0 (Version None)
Quarter: 2009Q1

REPORT INFORMATION
  Report Type: 
  Country: None (occurrence: None)
  Receive Date: 20090309
  Receipt Date: 20081222
  Transmission Date: 20090719
  Serious: Yes (Disabling, Other)
  Sender: FDA-Public Use
  Company Number: US-PFIZER INC-2008159697

PATIENT
  Sex: Male

DRUGS (3)
  1. CHANTIX [Suspect]
     Dosage: UNK
  2. NICOTROL [Suspect]
     Dosage: UNK
  3. WELLBUTRIN [Suspect]
     Dosage: UNK

REACTIONS (3)
  - BIPOLAR I DISORDER [None]
  - DISABILITY [None]
  - SUICIDAL IDEATION [None]
